FAERS Safety Report 5823198-7 (Version None)
Quarter: 2008Q3

REPORT INFORMATION
  Report Type: 
  Country: None (occurrence: None)
  Receive Date: 20080725
  Receipt Date: 20080718
  Transmission Date: 20090109
  Serious: Yes (Hospitalization, Other)
  Sender: FDA-Public Use
  Company Number: PHHY2008BR14736

PATIENT
  Age: 89 Year
  Sex: Female

DRUGS (1)
  1. CODATEN [Suspect]
     Indication: RIB FRACTURE

REACTIONS (4)
  - DEHYDRATION [None]
  - DIARRHOEA [None]
  - PAIN [None]
  - VOMITING [None]
